FAERS Safety Report 13181185 (Version 1)
Quarter: 2017Q1

REPORT INFORMATION
  Report Type: Spontaneous
  Country: US (occurrence: US)
  Receive Date: 20170202
  Receipt Date: 20170202
  Transmission Date: 20170428
  Serious: No
  Sender: FDA-Public Use
  Company Number: US-SMITH AND NEPHEW, INC-2016SMT00789

PATIENT
  Age: 81 Year
  Sex: Male
  Weight: 95.24 kg

DRUGS (23)
  1. AMIODARONE [Concomitant]
     Active Substance: AMIODARONE
  2. OMEPRAZOLE. [Concomitant]
     Active Substance: OMEPRAZOLE
  3. HYDROCODONE [Concomitant]
     Active Substance: HYDROCODONE
  4. TRAMADOL. [Concomitant]
     Active Substance: TRAMADOL
  5. SODIUM CHLORIDE. [Concomitant]
     Active Substance: SODIUM CHLORIDE
  6. VITAMIN C [Concomitant]
     Active Substance: ASCORBIC ACID
  7. REGRANEX [Suspect]
     Active Substance: BECAPLERMIN
     Dosage: UNK, APPLIED EVERY 2-3 DAYS
     Dates: start: 20160831, end: 201609
  8. MULTIVITAMIN [Concomitant]
     Active Substance: VITAMINS
  9. PLAVIX [Concomitant]
     Active Substance: CLOPIDOGREL BISULFATE
  10. ALBUTEROL SULFATE. [Concomitant]
     Active Substance: ALBUTEROL SULFATE
  11. REGRANEX [Suspect]
     Active Substance: BECAPLERMIN
     Indication: WOUND
     Dosage: UNK UNK, 1X/DAY
     Route: 061
     Dates: start: 201608, end: 201608
  12. NORVASC [Concomitant]
     Active Substance: AMLODIPINE BESYLATE
  13. IBUPROFEN. [Concomitant]
     Active Substance: IBUPROFEN
  14. BUSPAR [Concomitant]
     Active Substance: BUSPIRONE HYDROCHLORIDE
  15. REMERON [Concomitant]
     Active Substance: MIRTAZAPINE
  16. PROAIR HFA [Concomitant]
     Active Substance: ALBUTEROL SULFATE
  17. PREDNISONE. [Concomitant]
     Active Substance: PREDNISONE
  18. CLONAZEPAM. [Concomitant]
     Active Substance: CLONAZEPAM
  19. UNSPECIFIED MUCUS RELIEF MEDICATION [Concomitant]
  20. MIRALAX [Concomitant]
     Active Substance: POLYETHYLENE GLYCOL 3350
  21. NITROSTAT [Concomitant]
     Active Substance: NITROGLYCERIN
     Dosage: UNK, AS NEEDED
  22. LACTULOSE. [Concomitant]
     Active Substance: LACTULOSE
  23. ANORO ELLIPTA [Concomitant]
     Active Substance: UMECLIDINIUM BROMIDE\VILANTEROL TRIFENATATE

REACTIONS (5)
  - Wound complication [Not Recovered/Not Resolved]
  - Drug effect incomplete [Not Recovered/Not Resolved]
  - Hyperkeratosis [Recovering/Resolving]
  - Wound secretion [Recovering/Resolving]
  - Inappropriate schedule of drug administration [Not Recovered/Not Resolved]

NARRATIVE: CASE EVENT DATE: 201608
